FAERS Safety Report 8218776-4 (Version None)
Quarter: 2012Q1

REPORT INFORMATION
  Report Type: 
  Country: None (occurrence: None)
  Receive Date: 20120319
  Receipt Date: 20120313
  Transmission Date: 20120608
  Serious: Yes (Hospitalization, Other)
  Sender: FDA-Public Use
  Company Number: PHEH2012US004797

PATIENT
  Sex: Male

DRUGS (1)
  1. CLOZARIL [Suspect]

REACTIONS (4)
  - INFECTION [None]
  - WHITE BLOOD CELL COUNT INCREASED [None]
  - NECROTISING FASCIITIS [None]
  - NEUTROPHIL COUNT INCREASED [None]
